FAERS Safety Report 9213103 (Version 1)
Quarter: 2013Q1

REPORT INFORMATION
  Report Type: Spontaneous
  Country: US (occurrence: None)
  Receive Date: 20120820
  Receipt Date: 20120820
  Transmission Date: 20140127
  Serious: No
  Sender: FDA-Public Use
  Company Number: 1000036910

PATIENT
  Age: 55 Year
  Sex: Female
  Weight: 53.5 kg

DRUGS (3)
  1. VIIBRYD [Suspect]
     Indication: ANXIETY
     Dosage: 10 MG 1 IN 1 D
     Route: 048
     Dates: start: 20120601
  2. TOPOMAX [Concomitant]
  3. TAMOXIFEN (TAMOXIFEN) (TAMOXIFEN) [Concomitant]

REACTIONS (7)
  - Dyspepsia [None]
  - Nausea [None]
  - Asthenia [None]
  - Weight decreased [None]
  - Off label use [None]
  - Diarrhoea [None]
  - Migraine [None]
